FAERS Safety Report 7596245-2 (Version None)
Quarter: 2011Q3

REPORT INFORMATION
  Report Type: 
  Country: None (occurrence: None)
  Receive Date: 20110707
  Receipt Date: 20110630
  Transmission Date: 20111222
  Serious: Yes (Other)
  Sender: FDA-Public Use
  Company Number: KR-PFIZER INC-2011090226

PATIENT
  Age: 48 Year
  Sex: Female

DRUGS (1)
  1. VARENICLINE TARTRATE [Suspect]
     Indication: SMOKING CESSATION THERAPY
     Dosage: 0.5 MG, 2X/DAY
     Route: 048
     Dates: start: 20110208, end: 20110301

REACTIONS (8)
  - CONFUSIONAL STATE [None]
  - OBSESSIVE THOUGHTS [None]
  - LOCAL SWELLING [None]
  - ANXIETY DISORDER [None]
  - FEELING ABNORMAL [None]
  - SLEEP DISORDER [None]
  - HALLUCINATION [None]
  - THYROID DISORDER [None]
